FAERS Safety Report 9989636 (Version 2)
Quarter: 2014Q1

REPORT INFORMATION
  Report Type: Report from Study
  Country: SE (occurrence: SE)
  Receive Date: 20140310
  Receipt Date: 20140324
  Transmission Date: 20141002
  Serious: Yes (Hospitalization)
  Sender: FDA-Public Use
  Company Number: SE-SA-2014SA027787

PATIENT
  Age: 64 Year
  Sex: Male

DRUGS (3)
  1. CABAZITAXEL [Suspect]
     Indication: PROSTATE CANCER METASTATIC
     Route: 042
  2. CABAZITAXEL [Suspect]
     Indication: PROSTATE CANCER METASTATIC
     Route: 042
     Dates: start: 20140207, end: 20140207
  3. PREDNISONE [Suspect]
     Indication: PROSTATE CANCER METASTATIC
     Route: 048

REACTIONS (4)
  - Muscular weakness [Recovering/Resolving]
  - C-reactive protein increased [Recovering/Resolving]
  - Neck pain [Recovering/Resolving]
  - Abdominal pain [Recovering/Resolving]
